FAERS Safety Report 21956951 (Version 3)
Quarter: 2023Q4

REPORT INFORMATION
  Report Type: Spontaneous
  Country: US (occurrence: US)
  Receive Date: 20230206
  Receipt Date: 20231121
  Transmission Date: 20240109
  Serious: Yes (Other)
  Sender: FDA-Public Use
  Company Number: US-EXELIXIS-CABO-23060336

PATIENT
  Age: 69 Year
  Sex: Male
  Weight: 58.957 kg

DRUGS (2)
  1. OPDIVO [Suspect]
     Active Substance: NIVOLUMAB
     Indication: Renal cancer
     Dosage: UNK
  2. CABOMETYX [Suspect]
     Active Substance: CABOZANTINIB S-MALATE
     Indication: Renal cancer
     Dosage: 20 MG, QD
     Route: 048
     Dates: start: 20201226

REACTIONS (1)
  - Malignant neoplasm progression [Unknown]

NARRATIVE: CASE EVENT DATE: 20230127
